FAERS Safety Report 4920736-3 (Version None)
Quarter: 2006Q1

REPORT INFORMATION
  Report Type: 
  Country: None (occurrence: None)
  Receive Date: 20060223
  Receipt Date: 20060210
  Transmission Date: 20060701
  Serious: Yes (Other)
  Sender: FDA-Public Use
  Company Number: US-BOEHRINGER INGELHEIM PHARMACEUTICALS, INC.-2006-DE-00748GD

PATIENT
  Sex: Female

DRUGS (9)
  1. NEVIRAPINE [Suspect]
     Indication: HUMAN IMMUNODEFICIENCY VIRUS TRANSMISSION
     Route: 048
  2. NEVIRAPINE [Suspect]
     Indication: PROPHYLAXIS
  3. ZIDOVUDINE [Suspect]
     Indication: HIV INFECTION
  4. ZIDOVUDINE [Suspect]
     Indication: HUMAN IMMUNODEFICIENCY VIRUS TRANSMISSION
     Route: 042
  5. ZIDOVUDINE [Suspect]
     Indication: PROPHYLAXIS
  6. DIDANOSINE [Suspect]
     Indication: HIV INFECTION
  7. TENOFOVIR [Suspect]
     Indication: HIV INFECTION
  8. REYATAZ [Suspect]
     Indication: HIV INFECTION
  9. ENFUVIRTIDE [Suspect]
     Indication: HIV INFECTION

REACTIONS (4)
  - BLOOD HIV RNA INCREASED [None]
  - CAESAREAN SECTION [None]
  - DRUG EXPOSURE DURING PREGNANCY [None]
  - VIRAL MUTATION IDENTIFIED [None]
